FAERS Safety Report 18063594 (Version 1)
Quarter: 2020Q3

REPORT INFORMATION
  Report Type: Other
  Country: LU (occurrence: LU)
  Receive Date: 20200724
  Receipt Date: 20200724
  Transmission Date: 20201103
  Serious: Yes (Life-Threatening, Hospitalization, Other)
  Sender: FDA-Public Use
  Company Number: LU-DENTSPLY-2020SCDP000235

PATIENT
  Age: 18 Year
  Sex: Female

DRUGS (3)
  1. PIROXICAM. [Suspect]
     Active Substance: PIROXICAM
     Indication: ANALGESIC INTERVENTION SUPPORTIVE THERAPY
     Dosage: 1 DOSAGE FORM, TOTAL, 20 MG/3 ML INJECTION, PIROXICAM 6.6 MG/ML
  2. LIDOCAINE HCL [Suspect]
     Active Substance: LIDOCAINE HYDROCHLORIDE
     Indication: LOCAL ANAESTHESIA
     Dosage: 1 DOSAGE FORM, TOTAL, 30 MG/3 ML INJECTION
  3. METAMIZOLE [Suspect]
     Active Substance: METAMIZOLE
     Indication: ANALGESIC INTERVENTION SUPPORTIVE THERAPY
     Dosage: 1 DOSAGE FORM, TOTAL, INJECTION OF METAMIZOLE 500MG/ML

REACTIONS (3)
  - Cerebellar syndrome [Recovered/Resolved]
  - Toxicity to various agents [Recovered/Resolved]
  - Wrong technique in product usage process [Recovered/Resolved]
